FAERS Safety Report 26060082 (Version 1)
Quarter: 2025Q4

REPORT INFORMATION
  Report Type: Spontaneous
  Country: US (occurrence: None)
  Receive Date: 20251118
  Receipt Date: 20251118
  Transmission Date: 20260117
  Serious: No
  Sender: FDA-CTU
  Company Number: None

PATIENT
  Age: 40 Year
  Sex: Female

DRUGS (3)
  1. BENLYSTA [Suspect]
     Active Substance: BELIMUMAB
     Indication: Systemic lupus erythematosus
     Dates: start: 20250704
  2. AJOVY [Suspect]
     Active Substance: FREMANEZUMAB-VFRM
  3. NURTEC ODT [Suspect]
     Active Substance: RIMEGEPANT SULFATE

REACTIONS (4)
  - Systemic lupus erythematosus [None]
  - Condition aggravated [None]
  - Peripheral swelling [None]
  - Peripheral swelling [None]

NARRATIVE: CASE EVENT DATE: 20251113
